FAERS Safety Report 10228765 (Version 4)
Quarter: 2015Q3

REPORT INFORMATION
  Report Type: Spontaneous
  Country: IT (occurrence: IT)
  Receive Date: 20140610
  Receipt Date: 20150722
  Transmission Date: 20151125
  Serious: Yes (Hospitalization, Other)
  Sender: FDA-Public Use
  Company Number: IT-ELI_LILLY_AND_COMPANY-IT201404006274

PATIENT
  Age: 46 Year
  Sex: Male

DRUGS (2)
  1. ZYPADHERA [Suspect]
     Active Substance: OLANZAPINE PAMOATE
     Dosage: 300 MG, UNKNOWN
     Route: 065
     Dates: start: 20140415
  2. ZYPADHERA [Suspect]
     Active Substance: OLANZAPINE PAMOATE
     Indication: SCHIZOPHRENIA, PARANOID TYPE
     Dosage: 405 MG, UNKNOWN
     Route: 030
     Dates: start: 201209

REACTIONS (13)
  - Confusional state [Recovered/Resolved]
  - Left atrial dilatation [Unknown]
  - Somnolence [Recovered/Resolved]
  - Blood glucose increased [Unknown]
  - Sedation [Recovered/Resolved]
  - Aggression [Recovered/Resolved]
  - White blood cell count increased [Unknown]
  - Alanine aminotransferase increased [Unknown]
  - Heart rate increased [Recovered/Resolved]
  - Coma [Unknown]
  - Hallucination [Recovered/Resolved]
  - Loss of consciousness [Unknown]
  - Aspartate aminotransferase increased [Unknown]

NARRATIVE: CASE EVENT DATE: 201403
